FAERS Safety Report 6957432-7 (Version None)
Quarter: 2010Q3

REPORT INFORMATION
  Report Type: 
  Country: None (occurrence: None)
  Receive Date: 20100826
  Receipt Date: 20100811
  Transmission Date: 20110219
  Serious: Yes (Disabling, Other)
  Sender: FDA-Public Use
  Company Number: ACO_00707_2010

PATIENT
  Sex: Female
  Weight: 43.0917 kg

DRUGS (2)
  1. AMPYRA [Suspect]
     Indication: GAIT DISTURBANCE
     Dosage: (10 MG BID ORAL)
     Route: 048
     Dates: start: 20100325
  2. COPAXONE [Concomitant]

REACTIONS (2)
  - ABASIA [None]
  - DRUG EFFECT DECREASED [None]
